FAERS Safety Report 12267934 (Version 2)
Quarter: 2016Q2

REPORT INFORMATION
  Report Type: Spontaneous
  Country: IT (occurrence: IT)
  Receive Date: 20160414
  Receipt Date: 20160503
  Transmission Date: 20160815
  Serious: Yes (Death)
  Sender: FDA-Public Use
  Company Number: IT-009507513-1604ITA004726

PATIENT
  Age: 73 Year
  Sex: Female

DRUGS (7)
  1. LUVION (CANRENONE) [Concomitant]
     Active Substance: CANRENONE
     Indication: HYPERTENSION
     Dosage: STRENGTH 100 MG, UNKNOWN
     Route: 048
  2. VIEKIRAX [Suspect]
     Active Substance: OMBITASVIR\PARITAPREVIR\RITONAVIR
     Indication: CHRONIC HEPATITIS C
     Dosage: STRENGTH 12.5MG+75MG+50MG, 2 DOSE UNITS DAILY
     Route: 048
     Dates: start: 20160118, end: 20160125
  3. REBETOL [Suspect]
     Active Substance: RIBAVIRIN
     Indication: CHRONIC HEPATITIS C
     Dosage: 800 MG, DAILY
     Route: 048
     Dates: start: 20160118, end: 20160122
  4. EXVIERA [Suspect]
     Active Substance: DASABUVIR
     Indication: CHRONIC HEPATITIS C
     Dosage: 500 MG, QD
     Route: 048
     Dates: start: 20160118, end: 20160125
  5. KAYEXALATE [Concomitant]
     Active Substance: SODIUM POLYSTYRENE SULFONATE
     Indication: BLOOD POTASSIUM INCREASED
     Route: 048
  6. DILATREND [Concomitant]
     Active Substance: CARVEDILOL
     Indication: HYPERTENSION
     Dosage: UNK
     Route: 048
  7. SOLDESAM [Concomitant]
     Active Substance: DEXAMETHASONE
     Dosage: STRENGTH 8MG/2ML, UNKNOWN
     Route: 030

REACTIONS (4)
  - Renal failure [Fatal]
  - Vomiting [Fatal]
  - Nausea [Fatal]
  - Cardiac failure [Fatal]

NARRATIVE: CASE EVENT DATE: 20160119
